FAERS Safety Report 15613995 (Version 8)
Quarter: 2025Q3

REPORT INFORMATION
  Report Type: Spontaneous
  Country: EU (occurrence: EU)
  Receive Date: 20181113
  Receipt Date: 20250903
  Transmission Date: 20251021
  Serious: Yes (Hospitalization)
  Sender: MYLAN
  Company Number: EU-002147023-PHHY2018GR019643

PATIENT
  Age: 74 Year
  Sex: Female

DRUGS (6)
  1. PREGABALIN [Suspect]
     Active Substance: PREGABALIN
     Indication: Pain
     Dosage: 75 MILLIGRAM, BID
  2. CARBAMAZEPINE [Suspect]
     Active Substance: CARBAMAZEPINE
     Indication: Pain
     Dosage: 0.5 DF, BID (0.5 DF (200 MG), BID)
  3. TRAMADOL HYDROCHLORIDE [Suspect]
     Active Substance: TRAMADOL HYDROCHLORIDE
     Indication: Pain
  4. TRAMADOL HYDROCHLORIDE [Suspect]
     Active Substance: TRAMADOL HYDROCHLORIDE
  5. ACETAMINOPHEN [Concomitant]
     Active Substance: ACETAMINOPHEN
     Indication: Pain
  6. ACYCLOVIR [Concomitant]
     Active Substance: ACYCLOVIR
     Indication: Pain
     Dosage: 750 MG, TID

REACTIONS (5)
  - Pain [Recovering/Resolving]
  - Product use in unapproved indication [Unknown]
  - Drug ineffective [Recovered/Resolved]
  - Intentional product misuse [Unknown]
  - Medication error [Unknown]
